FAERS Safety Report 25708809 (Version 1)
Quarter: 2025Q3

REPORT INFORMATION
  Report Type: Report from Study
  Country: US (occurrence: US)
  Receive Date: 20250821
  Receipt Date: 20250821
  Transmission Date: 20251020
  Serious: No
  Sender: ACADIA PHARMACEUTICALS
  Company Number: US-ACADIA PHARMACEUTICALS INC.-ACA-2025-PIM-009308

PATIENT
  Age: 84 Year
  Sex: Female

DRUGS (11)
  1. NUPLAZID [Suspect]
     Active Substance: PIMAVANSERIN TARTRATE
     Indication: Parkinson^s disease
     Dosage: 34 MILLIGRAM, QD
     Route: 048
     Dates: start: 20241031
  2. QUETIAPINE [Concomitant]
     Active Substance: QUETIAPINE
  3. METOPROLOL [Concomitant]
     Active Substance: METOPROLOL
  4. LORAZEPAM [Concomitant]
     Active Substance: LORAZEPAM
  5. CARBIDOPA\LEVODOPA [Concomitant]
     Active Substance: CARBIDOPA\LEVODOPA
  6. DULOXETINE [Concomitant]
     Active Substance: DULOXETINE
  7. FAMOTIDINE [Concomitant]
     Active Substance: FAMOTIDINE
  8. MIRTAZAPINE [Concomitant]
     Active Substance: MIRTAZAPINE
  9. NITROFURANTOIN [Concomitant]
     Active Substance: NITROFURANTOIN
  10. MULTIVITAMIN [ASCORBIC ACID;CALCIUM CARBONATE;CYANOCOBALAMIN;NICOTINAM [Concomitant]
  11. MAGNESIUM [Concomitant]
     Active Substance: MAGNESIUM

REACTIONS (2)
  - Migraine [Not Recovered/Not Resolved]
  - Dyspepsia [Not Recovered/Not Resolved]

NARRATIVE: CASE EVENT DATE: 20250722
